FAERS Safety Report 9953297 (Version 1)
Quarter: 2014Q1

REPORT INFORMATION
  Report Type: Report from Study
  Country: US (occurrence: US)
  Receive Date: 20140304
  Receipt Date: 20140304
  Transmission Date: 20141002
  Serious: No
  Sender: FDA-Public Use
  Company Number: US-ABBVIE-13P-163-1075510-00

PATIENT
  Age: 53 Year
  Sex: Female

DRUGS (14)
  1. HUMIRA [Suspect]
     Indication: COLITIS ULCERATIVE
     Dosage: LOADING DOSE
     Dates: start: 20130404
  2. PREDNISONE [Concomitant]
     Indication: PRODUCT USED FOR UNKNOWN INDICATION
     Dosage: TAPERING OFF
  3. GREE SUPER FOOD ORGANIC DRINK WITH SUPPLEMENTS [Concomitant]
     Indication: PRODUCT USED FOR UNKNOWN INDICATION
  4. DELICIOUS REDS 8000 ANTIOXIDENT BLENDS DRINK [Concomitant]
     Indication: PRODUCT USED FOR UNKNOWN INDICATION
  5. ASHWAGANDHA [Concomitant]
     Indication: PRODUCT USED FOR UNKNOWN INDICATION
  6. KERKERMIE TUMERIC WITH GARLIC SUPPLEMENT [Concomitant]
     Indication: PRODUCT USED FOR UNKNOWN INDICATION
     Dosage: 500/150 MG
  7. INSTAFLEX JOINT SUPPLEMENT [Concomitant]
     Indication: PRODUCT USED FOR UNKNOWN INDICATION
  8. EASY IRON [Concomitant]
     Indication: PRODUCT USED FOR UNKNOWN INDICATION
  9. COQ10 [Concomitant]
     Indication: PRODUCT USED FOR UNKNOWN INDICATION
  10. MEGA RED KRILL OIL [Concomitant]
     Indication: PRODUCT USED FOR UNKNOWN INDICATION
  11. VSL #3 DOUBLE STRENGTH PROBIOTIC [Concomitant]
     Indication: PRODUCT USED FOR UNKNOWN INDICATION
  12. VITB12/BD/FOLIC ACID COMBO [Concomitant]
     Indication: PRODUCT USED FOR UNKNOWN INDICATION
  13. CALCIUM GUMMIES [Concomitant]
     Indication: PRODUCT USED FOR UNKNOWN INDICATION
  14. VIT D3 [Concomitant]
     Indication: PRODUCT USED FOR UNKNOWN INDICATION

REACTIONS (2)
  - Joint swelling [Not Recovered/Not Resolved]
  - Injection site pain [Not Recovered/Not Resolved]
